FAERS Safety Report 5590952-9 (Version None)
Quarter: 2007Q4

REPORT INFORMATION
  Report Type: 
  Country: None (occurrence: None)
  Receive Date: 20071212
  Receipt Date: 20070912
  Transmission Date: 20080405
  Serious: No
  Sender: FDA-Public Use
  Company Number: 2007RL000438

PATIENT

DRUGS (1)
  1. LOVAZA [Suspect]
     Indication: ARTHRITIS
     Dosage: 1 GM;QD;PO
     Route: 048

REACTIONS (2)
  - LOW DENSITY LIPOPROTEIN INCREASED [None]
  - OFF LABEL USE [None]
